FAERS Safety Report 26081880 (Version 3)
Quarter: 2025Q4

REPORT INFORMATION
  Report Type: Spontaneous
  Country: JP (occurrence: JP)
  Receive Date: 20251124
  Receipt Date: 20251217
  Transmission Date: 20260117
  Serious: Yes (Other)
  Sender: ANI
  Company Number: JP-ANIPHARMA-031186

PATIENT
  Age: 6 Decade
  Sex: Male

DRUGS (4)
  1. BICALUTAMIDE [Suspect]
     Active Substance: BICALUTAMIDE
     Indication: Prostate cancer
  2. LYNPARZA [Concomitant]
     Active Substance: OLAPARIB
     Indication: Hormone-refractory prostate cancer
     Route: 048
  3. GOSERELIN ACETATE [Concomitant]
     Active Substance: GOSERELIN ACETATE
     Indication: Prostate cancer
     Dosage: 10.8 MG DEPOT
  4. DEVICE [Concomitant]
     Active Substance: DEVICE
     Indication: Product used for unknown indication

REACTIONS (2)
  - Hepatic function abnormal [Unknown]
  - Prostatic specific antigen increased [Unknown]
